FAERS Safety Report 4475184-X (Version None)
Quarter: 2004Q4

REPORT INFORMATION
  Report Type: 
  Country: None (occurrence: None)
  Receive Date: 20041015
  Receipt Date: 20041004
  Transmission Date: 20050328
  Serious: Yes (Hospitalization)
  Sender: FDA-Public Use
  Company Number: JP-BRISTOL-MYERS SQUIBB COMPANY-12721965

PATIENT
  Age: 79 Year
  Sex: Female

DRUGS (5)
  1. BUFFERIN LION TABS 81 MG [Suspect]
     Indication: PLATELET COUNT INCREASED
     Route: 048
     Dates: start: 19930101, end: 20030207
  2. HYDREA [Suspect]
     Indication: POLYCYTHAEMIA VERA
     Route: 048
     Dates: start: 19930101, end: 20030207
  3. ALDACTONE-A [Concomitant]
     Indication: POLYURIA
     Route: 048
     Dates: end: 20030207
  4. PERDIPINE [Concomitant]
     Indication: ANGINA PECTORIS
     Route: 048
     Dates: end: 20030312
  5. MUCOSTA [Concomitant]
     Indication: GASTRIC ULCER
     Route: 048
     Dates: end: 20030207

REACTIONS (4)
  - ENTEROCOLITIS [None]
  - HAEMOGLOBIN DECREASED [None]
  - MELAENA [None]
  - POLYURIA [None]
